FAERS Safety Report 8943803 (Version 2)
Quarter: 2013Q1

REPORT INFORMATION
  Report Type: Spontaneous
  Country: NL (occurrence: NL)
  Receive Date: 20121204
  Receipt Date: 20130102
  Transmission Date: 20140127
  Serious: Yes (Life-Threatening, Other)
  Sender: FDA-Public Use
  Company Number: NL-JNJFOC-20121114745

PATIENT
  Age: 55 Year
  Sex: Female
  Weight: 80 kg

DRUGS (2)
  1. IMODIUM [Suspect]
     Route: 048
  2. IMODIUM [Suspect]
     Indication: DIARRHOEA
     Dosage: ONE TABLET IN THE MORNING, AND ONE TABLET AT 2 P.M.
     Route: 048
     Dates: start: 20121016, end: 20121016

REACTIONS (7)
  - Dyspnoea [Unknown]
  - Eye swelling [Unknown]
  - Pruritus generalised [Unknown]
  - Swelling face [Unknown]
  - Local swelling [Unknown]
  - Local swelling [Unknown]
  - Skin exfoliation [Unknown]
